FAERS Safety Report 10112328 (Version 1)
Quarter: 2014Q2

REPORT INFORMATION
  Report Type: Spontaneous
  Country: NL (occurrence: NL)
  Receive Date: 20140425
  Receipt Date: 20140425
  Transmission Date: 20141212
  Serious: Yes (Death, Other)
  Sender: FDA-Public Use
  Company Number: NL-PFIZER INC-2014111275

PATIENT
  Age: 70 Year
  Sex: Female
  Weight: 111.1 kg

DRUGS (5)
  1. VENLAFAXINE HCL [Suspect]
     Indication: AFFECTIVE DISORDER
     Dosage: 75 MG, 2X/DAY
  2. METHYLENE BLUE [Interacting]
     Dosage: 1 G
     Route: 042
  3. PROPOFOL [Concomitant]
     Indication: INDUCTION OF ANAESTHESIA
     Dosage: UNK
  4. SEVOFLURANE [Concomitant]
     Indication: MAINTENANCE OF ANAESTHESIA
     Dosage: UNK
  5. ATRACURIUM [Concomitant]
     Indication: HYPOTONIA
     Dosage: UNK

REACTIONS (3)
  - Drug interaction [Fatal]
  - Serotonin syndrome [Fatal]
  - Circulatory collapse [Fatal]
